FAERS Safety Report 19512052 (Version 1)
Quarter: 2021Q3

REPORT INFORMATION
  Report Type: Spontaneous
  Country: CH (occurrence: CH)
  Receive Date: 20210709
  Receipt Date: 20210709
  Transmission Date: 20211014
  Serious: Yes (Hospitalization, Other)
  Sender: FDA-Public Use
  Company Number: CH-PFIZER INC-2021771165

PATIENT
  Age: 72 Year
  Sex: Female

DRUGS (18)
  1. TEMESTA EXPIDET [Suspect]
     Active Substance: LORAZEPAM
     Dosage: 1.25 MG IN RESERVE
     Dates: start: 2015, end: 20210520
  2. ULTIBRO BREEZHALER [Concomitant]
     Active Substance: GLYCOPYRRONIUM\INDACATEROL
     Dates: start: 2018
  3. SEVIKAR [Suspect]
     Active Substance: AMLODIPINE BESYLATE\OLMESARTAN MEDOXOMIL
     Indication: HYPERTENSION
     Dosage: 2 DF, 1X/DAY
     Dates: start: 2011
  4. ATORVASTATINE [ATORVASTATIN] [Concomitant]
     Active Substance: ATORVASTATIN
     Dates: start: 2011
  5. DAFALGAN [Concomitant]
     Active Substance: ACETAMINOPHEN
     Dosage: UNK, AS NEEDED
  6. CYMBALTA [Suspect]
     Active Substance: DULOXETINE HYDROCHLORIDE
     Indication: DEPRESSION
     Dosage: 30 MG, 1X/DAY
     Route: 048
     Dates: start: 2017
  7. TEMESTA EXPIDET [Suspect]
     Active Substance: LORAZEPAM
     Indication: ANXIETY DISORDER
     Dosage: 1.25 MG, DAILY; AT BETDIME
     Dates: start: 2015
  8. QUETIAPIN [Suspect]
     Active Substance: QUETIAPINE
     Dosage: 25 MG, AS NEEDED; MG 1X/DAY PER OS IN RESERVE IF ANXIOUS
     Route: 048
     Dates: start: 2011
  9. NEBILET [Concomitant]
     Active Substance: NEBIVOLOL
     Dates: start: 2014
  10. QUETIAPIN [Suspect]
     Active Substance: QUETIAPINE
     Indication: MAJOR DEPRESSION
     Dosage: 150 MG, 1X/DAY; AT BEDTIME
     Route: 048
     Dates: start: 2011
  11. ZITHROMAX [Concomitant]
     Active Substance: AZITHROMYCIN DIHYDRATE
     Dates: start: 2015
  12. LAXOBERON [Concomitant]
     Active Substance: SODIUM PICOSULFATE
     Dosage: UNK, AS NEEDED
  13. LUVIT D3 [Concomitant]
     Active Substance: CHOLECALCIFEROL
  14. BECOZYME [CALCIUM PANTOTHENATE;NICOTINAMIDE;PYRIDOXINE HYDROCHLORIDE;R [Concomitant]
  15. VENTOLIN [Suspect]
     Active Substance: ALBUTEROL SULFATE
     Indication: CHRONIC OBSTRUCTIVE PULMONARY DISEASE
     Dosage: 100 UG, AS NEEDED; 100 MICROG 3X/DAY (MAX) INHALATION IN RESERVE IF DYSPNOEA
     Route: 055
     Dates: start: 2014, end: 20210521
  16. BENERVA [Concomitant]
     Active Substance: THIAMINE HYDROCHLORIDE
  17. TEMESTA EXPIDET [Suspect]
     Active Substance: LORAZEPAM
     Dosage: 0.5 MG, 1X/DAY IN RESERVE
     Dates: start: 20210520
  18. DAXAS [Suspect]
     Active Substance: ROFLUMILAST
     Indication: CHRONIC OBSTRUCTIVE PULMONARY DISEASE
     Dosage: 500 UG, 1X/DAY; MORNING
     Route: 048
     Dates: start: 2019

REACTIONS (10)
  - Chronic obstructive pulmonary disease [Unknown]
  - Muscular weakness [Unknown]
  - Fall [Unknown]
  - Inappropriate antidiuretic hormone secretion [Unknown]
  - Hyponatraemia [Recovering/Resolving]
  - Wrong technique in product usage process [Unknown]
  - Action tremor [Not Recovered/Not Resolved]
  - Pulmonary mass [Unknown]
  - Hypernatraemia [Unknown]
  - Adrenal insufficiency [Unknown]

NARRATIVE: CASE EVENT DATE: 2015
